FAERS Safety Report 4429665-5 (Version None)
Quarter: 2004Q3

REPORT INFORMATION
  Report Type: 
  Country: None (occurrence: None)
  Receive Date: 20040819
  Receipt Date: 20040816
  Transmission Date: 20050211
  Serious: Yes (Disabling)
  Sender: FDA-Public Use
  Company Number: US-MERCK-0408USA01304

PATIENT
  Sex: Male

DRUGS (4)
  1. SYNTHROID [Concomitant]
     Route: 065
  2. PRILOSEC [Concomitant]
     Route: 065
  3. VIOXX [Suspect]
     Indication: ARTHRITIS
     Route: 048
     Dates: start: 20000101
  4. ZOCOR [Concomitant]
     Route: 065

REACTIONS (1)
  - DRUG INEFFECTIVE [None]
